FAERS Safety Report 12085767 (Version 2)
Quarter: 2016Q1

REPORT INFORMATION
  Report Type: Spontaneous
  Country: US (occurrence: US)
  Receive Date: 20160217
  Receipt Date: 20160226
  Transmission Date: 20160526
  Serious: Yes (Other)
  Sender: FDA-Public Use
  Company Number: US-TEVA-635268USA

PATIENT
  Sex: Female

DRUGS (1)
  1. ZECUITY [Suspect]
     Active Substance: SUMATRIPTAN SUCCINATE
     Indication: MIGRAINE
     Dosage: 6.5 MG / 4 HOURS
     Route: 062
     Dates: start: 2016, end: 2016

REACTIONS (2)
  - Application site burn [Recovered/Resolved]
  - Burns second degree [Recovered/Resolved]

NARRATIVE: CASE EVENT DATE: 2016
